FAERS Safety Report 14763499 (Version 3)
Quarter: 2018Q2

REPORT INFORMATION
  Report Type: Spontaneous
  Country: IL (occurrence: IL)
  Receive Date: 20180416
  Receipt Date: 20180604
  Transmission Date: 20180711
  Serious: Yes (Death, Other)
  Sender: FDA-Public Use
  Company Number: IL-CELGENEUS-ISR-20180402980

PATIENT
  Age: 73 Year
  Sex: Male

DRUGS (8)
  1. DEXAMETHASONE. [Suspect]
     Active Substance: DEXAMETHASONE
     Indication: PLASMA CELL MYELOMA
     Route: 065
     Dates: start: 20170130
  2. NIVOLUMAB [Concomitant]
     Active Substance: NIVOLUMAB
     Route: 065
     Dates: start: 20170601, end: 20170629
  3. POMALIDOMIDE [Suspect]
     Active Substance: POMALIDOMIDE
     Indication: PLASMA CELL MYELOMA
     Route: 048
     Dates: start: 20170130
  4. ELOTUZUMAB. [Concomitant]
     Active Substance: ELOTUZUMAB
     Indication: PLASMA CELL MYELOMA
     Route: 065
  5. POMALIDOMIDE [Suspect]
     Active Substance: POMALIDOMIDE
     Route: 048
     Dates: start: 20170507
  6. POMALIDOMIDE [Suspect]
     Active Substance: POMALIDOMIDE
     Route: 048
     Dates: start: 20170330, end: 20170419
  7. NIVOLUMAB [Concomitant]
     Active Substance: NIVOLUMAB
     Indication: PLASMA CELL MYELOMA
     Route: 065
     Dates: start: 20170130, end: 20170518
  8. POMALIDOMIDE [Suspect]
     Active Substance: POMALIDOMIDE
     Route: 048
     Dates: start: 20170227, end: 20170319

REACTIONS (1)
  - Plasma cell myeloma [Fatal]

NARRATIVE: CASE EVENT DATE: 20180403
